FAERS Safety Report 9119093 (Version 4)
Quarter: 2013Q4

REPORT INFORMATION
  Report Type: Spontaneous
  Country: US (occurrence: US)
  Receive Date: 20130226
  Receipt Date: 20131202
  Transmission Date: 20140711
  Serious: Yes (Hospitalization)
  Sender: FDA-Public Use
  Company Number: US-BIOGENIDEC-2013BI016477

PATIENT
  Age: 30 Year
  Sex: Male

DRUGS (1)
  1. TYSABRI [Suspect]
     Indication: MULTIPLE SCLEROSIS
     Route: 042
     Dates: start: 20130124, end: 20130124

REACTIONS (19)
  - Multiple sclerosis [Recovered/Resolved]
  - Abdominal pain upper [Recovered/Resolved]
  - Pain [Recovered/Resolved]
  - Back pain [Recovered/Resolved]
  - Hypoaesthesia [Recovered/Resolved]
  - Vitreous floaters [Not Recovered/Not Resolved]
  - Dysstasia [Unknown]
  - Muscular weakness [Unknown]
  - Dysarthria [Unknown]
  - Sensory disturbance [Recovered/Resolved]
  - Diplopia [Recovered/Resolved]
  - Mental impairment [Recovered/Resolved]
  - Neck pain [Recovered/Resolved]
  - Ear haemorrhage [Recovered/Resolved]
  - Epistaxis [Recovered/Resolved]
  - Fatigue [Unknown]
  - Headache [Recovered/Resolved]
  - Asthenia [Recovered/Resolved]
  - Paralysis [Recovered/Resolved]
